FAERS Safety Report 4530453-X (Version None)
Quarter: 2004Q4

REPORT INFORMATION
  Report Type: 
  Country: None (occurrence: None)
  Receive Date: 20041215
  Receipt Date: 20041130
  Transmission Date: 20050328
  Serious: Yes (Hospitalization)
  Sender: FDA-Public Use
  Company Number: 2004AP000901

PATIENT
  Age: 41 Year
  Sex: Male

DRUGS (8)
  1. GEMFIBROZIL [Suspect]
     Indication: BLOOD TRIGLYCERIDES INCREASED
     Dosage: 600 MG; TWICE A DAY; ORAL
     Route: 048
     Dates: start: 20041101, end: 20041101
  2. ZARONTIN [Concomitant]
  3. GABITRIL [Concomitant]
  4. TRAZODONE HCL [Concomitant]
  5. VENLAFAXINE HCL [Concomitant]
  6. GEODON [Concomitant]
  7. SPIRONOLACTONE [Concomitant]
  8. OXYCONTIN [Concomitant]

REACTIONS (4)
  - AGITATION [None]
  - CONFUSIONAL STATE [None]
  - DELIRIUM [None]
  - DELUSION [None]
